FAERS Safety Report 22291924 (Version 3)
Quarter: 2023Q2

REPORT INFORMATION
  Report Type: Report from Study
  Country: ES (occurrence: ES)
  Receive Date: 20230507
  Receipt Date: 20230616
  Transmission Date: 20230722
  Serious: Yes (Death, Hospitalization, Other)
  Sender: FDA-Public Use
  Company Number: ES-CELLTRION INC.-2023ES009327

PATIENT

DRUGS (16)
  1. BEVACIZUMAB [Suspect]
     Active Substance: BEVACIZUMAB
     Indication: Hepatocellular carcinoma
     Dosage: 906 MG
     Route: 065
     Dates: start: 20230315
  2. ATEZOLIZUMAB [Suspect]
     Active Substance: ATEZOLIZUMAB
     Indication: Hepatocellular carcinoma
     Dosage: 1200 MG, EVERY 3 WEEK
     Route: 042
     Dates: start: 20230315
  3. CAPTOPRIL [Concomitant]
     Active Substance: CAPTOPRIL
  4. LOPERAMIDE [Concomitant]
     Active Substance: LOPERAMIDE
  5. LISINOPRIL [Concomitant]
     Active Substance: LISINOPRIL
  6. BENSERAZIDE\LEVODOPA [Concomitant]
     Active Substance: BENSERAZIDE\LEVODOPA
     Dosage: EVERY 1 DAY
     Dates: start: 20230309
  7. FUROSEMIDE [Concomitant]
     Active Substance: FUROSEMIDE
     Dosage: EVERY 1 DAY
  8. METFORMIN HYDROCHLORIDE [Concomitant]
     Active Substance: METFORMIN HYDROCHLORIDE
  9. METHIMAZOLE [Concomitant]
     Active Substance: METHIMAZOLE
  10. AMLODIPINE [Concomitant]
     Active Substance: AMLODIPINE BESYLATE
     Dosage: EVERY 1 DAY
  11. ACETAMINOPHEN [Concomitant]
     Active Substance: ACETAMINOPHEN
     Dosage: UNK
     Dates: start: 20230321, end: 20230327
  12. RASAGILINE [Concomitant]
     Active Substance: RASAGILINE
     Dosage: EVERY 1 DAY
     Dates: start: 20230309
  13. GABAPENTIN [Concomitant]
     Active Substance: GABAPENTIN
     Dosage: EVERY 1 DAY
     Dates: start: 20230309
  14. OMEPRAZOLE [Concomitant]
     Active Substance: OMEPRAZOLE
     Dosage: EVERY 1 DAY
  15. ASPIRIN [Concomitant]
     Active Substance: ASPIRIN
     Dosage: EVERY 1 DAY
  16. PIPERACILLIN AND TAZOBACTAM [Concomitant]
     Active Substance: PIPERACILLIN SODIUM\TAZOBACTAM SODIUM
     Dosage: UNK

REACTIONS (2)
  - Gastric perforation [Fatal]
  - Intentional product use issue [Unknown]

NARRATIVE: CASE EVENT DATE: 20230419
